FAERS Safety Report 6992455-3 (Version None)
Quarter: 2010Q3

REPORT INFORMATION
  Report Type: 
  Country: None (occurrence: None)
  Receive Date: 20100917
  Receipt Date: 20100906
  Transmission Date: 20110219
  Serious: Yes (Hospitalization)
  Sender: FDA-Public Use
  Company Number: PHHY2010MX22644

PATIENT
  Sex: Female
  Weight: 62 kg

DRUGS (2)
  1. TEGRETOL [Suspect]
     Indication: EPILEPSY
     Dosage: 0.25 DF PER DAY
     Route: 048
     Dates: start: 20100401, end: 20100413
  2. EXELON [Suspect]
     Indication: DEMENTIA ALZHEIMER'S TYPE
     Dosage: 1 PATCH (10 CM2 5CM2)  PER DAY
     Route: 062
     Dates: start: 20100401, end: 20100413

REACTIONS (4)
  - DEHYDRATION [None]
  - DELIRIUM [None]
  - DIARRHOEA [None]
  - VOMITING [None]
